FAERS Safety Report 25125671 (Version 1)
Quarter: 2025Q1

REPORT INFORMATION
  Report Type: Spontaneous
  Country: US (occurrence: US)
  Receive Date: 20250326
  Receipt Date: 20250326
  Transmission Date: 20250409
  Serious: Yes (Other)
  Sender: NOVARTIS
  Company Number: US-002147023-NVSC2025US046754

PATIENT
  Age: 70 Year
  Sex: Male

DRUGS (3)
  1. PLUVICTO [Suspect]
     Active Substance: LUTETIUM LU-177 VIPIVOTIDE TETRAXETAN
     Indication: Hormone-refractory prostate cancer
     Route: 065
  2. DOCETAXEL [Suspect]
     Active Substance: DOCETAXEL
     Indication: Hormone-refractory prostate cancer
     Route: 065
  3. CABAZITAXEL [Suspect]
     Active Substance: CABAZITAXEL
     Indication: Hormone-refractory prostate cancer
     Route: 065

REACTIONS (6)
  - Metastases to bone [Unknown]
  - Metastases to pelvis [Unknown]
  - Metastases to spine [Unknown]
  - Metastases to liver [Unknown]
  - Drug ineffective [Not Recovered/Not Resolved]
  - Drug intolerance [Unknown]
